FAERS Safety Report 19939684 (Version 4)
Quarter: 2023Q1

REPORT INFORMATION
  Report Type: Report from Study
  Country: CA (occurrence: CA)
  Receive Date: 20211012
  Receipt Date: 20230116
  Transmission Date: 20230418
  Serious: Yes (Other)
  Sender: FDA-Public Use
  Company Number: CA-ABBVIE-21K-028-4071796-00

PATIENT
  Age: 58 Year
  Sex: Female

DRUGS (2)
  1. RINVOQ [Suspect]
     Active Substance: UPADACITINIB
     Indication: Rheumatoid arthritis
     Route: 048
     Dates: start: 20200728, end: 20211014
  2. RINVOQ [Suspect]
     Active Substance: UPADACITINIB
     Indication: Rheumatoid arthritis
     Route: 048
     Dates: end: 20230108

REACTIONS (18)
  - Surgery [Unknown]
  - Hip arthroplasty [Unknown]
  - Postoperative wound infection [Unknown]
  - Pain [Unknown]
  - Feeling hot [Unknown]
  - Arthralgia [Unknown]
  - Inflammatory marker increased [Unknown]
  - Joint lock [Unknown]
  - Pain in extremity [Not Recovered/Not Resolved]
  - Peripheral swelling [Not Recovered/Not Resolved]
  - Peripheral swelling [Not Recovered/Not Resolved]
  - Skin exfoliation [Unknown]
  - Arthritis infective [Recovered/Resolved]
  - Therapeutic aspiration [Unknown]
  - Arthropathy [Not Recovered/Not Resolved]
  - Blister [Unknown]
  - Infection [Not Recovered/Not Resolved]
  - Unevaluable event [Unknown]

NARRATIVE: CASE EVENT DATE: 20201101
